FAERS Safety Report 9099159 (Version 1)
Quarter: 2013Q1

REPORT INFORMATION
  Report Type: Spontaneous
  Country: FR (occurrence: FR)
  Receive Date: 20130213
  Receipt Date: 20130213
  Transmission Date: 20140127
  Serious: Yes (Other)
  Sender: FDA-Public Use
  Company Number: FR-009507513-1302FRA000991

PATIENT
  Age: 35 Year
  Sex: Male

DRUGS (16)
  1. CANCIDAS [Suspect]
     Indication: ANTIFUNGAL PROPHYLAXIS
     Dosage: 50 MG, QD
     Route: 042
     Dates: start: 20121222, end: 20121231
  2. CIPROFLOXACIN [Suspect]
     Indication: ANTIBIOTIC PROPHYLAXIS
     Dosage: 400 MG, QOD
     Route: 042
     Dates: start: 20121205, end: 20121228
  3. ACYCLOVIR [Suspect]
     Indication: ANTIVIRAL PROPHYLAXIS
     Dosage: 500 MG, TID
     Route: 042
     Dates: end: 20121231
  4. DORIBAX [Suspect]
     Indication: ANTIBIOTIC PROPHYLAXIS
     Dosage: 500 MG, TID
     Route: 042
     Dates: start: 20121222, end: 20130102
  5. ZYVOXID [Suspect]
     Indication: ANTIBIOTIC PROPHYLAXIS
     Dosage: UNK
     Route: 042
     Dates: start: 20121211, end: 20130102
  6. HEPARIN SODIUM [Concomitant]
  7. PHOCYTAN [Concomitant]
  8. TRACUTIL [Concomitant]
  9. INEXIUM [Concomitant]
  10. POTASSIUM CHLORATE [Concomitant]
  11. CERNEVIT [Concomitant]
  12. GELOX (ALUMINUM HYDROXIDE) [Concomitant]
  13. CYCLOSPORINE [Concomitant]
  14. TRIMETHYLPHLOROGLUCINOL [Concomitant]
  15. DELURSAN [Concomitant]
  16. LARGACTIL [Concomitant]

REACTIONS (2)
  - Hepatitis [Recovered/Resolved]
  - Encephalopathy [Recovered/Resolved]
